FAERS Safety Report 6544169-1 (Version None)
Quarter: 2010Q1

REPORT INFORMATION
  Report Type: 
  Country: None (occurrence: None)
  Receive Date: 20100120
  Receipt Date: 20090908
  Transmission Date: 20100710
  Serious: No
  Sender: FDA-Public Use
  Company Number: US-ALLERGAN-0912594US

PATIENT
  Age: 67 Year
  Sex: Female
  Weight: 63.492 kg

DRUGS (11)
  1. PRED FORTE [Suspect]
     Indication: POSTOPERATIVE CARE
     Dosage: 1 GTT, TID
     Route: 047
     Dates: start: 20090702, end: 20090707
  2. PRED FORTE [Suspect]
     Dosage: 1 GTT, BID
     Route: 047
     Dates: start: 20090708, end: 20090714
  3. PRED FORTE [Suspect]
     Dosage: 1 GTT, QD
     Route: 047
     Dates: start: 20090715, end: 20090721
  4. PRED FORTE [Suspect]
     Dosage: 1 GTT, TID
     Dates: start: 20090716, end: 20090721
  5. PRED FORTE [Suspect]
     Dosage: 1 GTT, BID
     Route: 047
     Dates: start: 20090722, end: 20090728
  6. ALPHAGAN [Concomitant]
     Indication: GLAUCOMA
     Dosage: 1 GTT, TID
     Route: 047
  7. LUMIGAN [Concomitant]
     Indication: GLAUCOMA
     Dosage: 1 GTT, QHS
     Route: 047
  8. SYSTANE [Concomitant]
     Indication: DRY EYE
     Route: 047
  9. ZYMAR [Concomitant]
     Indication: POSTOPERATIVE CARE
     Dosage: UNK
  10. OPTIVE [Concomitant]
     Indication: DRY EYE
  11. THERATEARS [Concomitant]
     Indication: DRY EYE
     Route: 047

REACTIONS (3)
  - OCULAR HYPERAEMIA [None]
  - PHOTOPHOBIA [None]
  - VISION BLURRED [None]
